FAERS Safety Report 13615137 (Version 1)
Quarter: 2017Q2

REPORT INFORMATION
  Report Type: Report from Study
  Country: US (occurrence: US)
  Receive Date: 20170606
  Receipt Date: 20170606
  Transmission Date: 20170830
  Serious: Yes (Death)
  Sender: FDA-Public Use
  Company Number: US-BION-006344

PATIENT
  Age: 17 Year
  Sex: Female

DRUGS (15)
  1. HYDROCODONE/PARACETAMOL [Suspect]
     Active Substance: ACETAMINOPHEN\HYDROCODONE BITARTRATE
  2. PSEUDOEPHEDRINE HYDROCHLORIDE. [Suspect]
     Active Substance: PSEUDOEPHEDRINE HYDROCHLORIDE
  3. IBUPROFEN UNKNOWN PRODUCT [Suspect]
     Active Substance: IBUPROFEN
  4. CITALOPRAM [Suspect]
     Active Substance: CITALOPRAM HYDROBROMIDE
  5. ROSUVASTATIN. [Suspect]
     Active Substance: ROSUVASTATIN
  6. MONTELUKAST [Suspect]
     Active Substance: MONTELUKAST SODIUM
  7. HALOPERIDOL. [Suspect]
     Active Substance: HALOPERIDOL
  8. METHYLPHENIDATE. [Suspect]
     Active Substance: METHYLPHENIDATE
  9. FLUOXETINE [Suspect]
     Active Substance: FLUOXETINE HYDROCHLORIDE
  10. MAGNESIUM HYDROXIDE. [Suspect]
     Active Substance: MAGNESIUM HYDROXIDE
  11. GUAIFENESIN. [Suspect]
     Active Substance: GUAIFENESIN
  12. LOPERAMIDE UNKNOWN PRODUCT [Suspect]
     Active Substance: LOPERAMIDE
  13. NAPROXEN UNKNOWN PRODUCT [Suspect]
     Active Substance: NAPROXEN
  14. DEXTROMETHORPHAN [Suspect]
     Active Substance: DEXTROMETHORPHAN
  15. HYOSCYAMINE/HYOSCYAMINE HYDROBROMIDE/HYOSCYAMINE SULFATE [Suspect]
     Active Substance: HYOSCYAMINE

REACTIONS (1)
  - Intentional product misuse [Fatal]
